FAERS Safety Report 13904497 (Version 1)
Quarter: 2017Q3

REPORT INFORMATION
  Report Type: Spontaneous
  Country: AE (occurrence: AE)
  Receive Date: 20170825
  Receipt Date: 20170825
  Transmission Date: 20171127
  Serious: Yes (Life-Threatening, Hospitalization, Other)
  Sender: FDA-Public Use
  Company Number: AE-SUN PHARMACEUTICAL INDUSTRIES LTD-2017RR-148286

PATIENT
  Age: 62 Year
  Sex: Female
  Weight: 84 kg

DRUGS (29)
  1. FOSFOMYCINE [Suspect]
     Active Substance: FOSFOMYCIN
     Indication: KLEBSIELLA INFECTION
     Dosage: 3 G, 1 DOSE, INITIALLY
     Route: 048
     Dates: start: 201512
  2. FOSFOMYCINE [Suspect]
     Active Substance: FOSFOMYCIN
     Dosage: 3 G X 2 DOSES
     Route: 048
  3. CIPROFLOXACIN. [Suspect]
     Active Substance: CIPROFLOXACIN
     Indication: KLEBSIELLA INFECTION
     Route: 065
  4. GENTAMICIN. [Suspect]
     Active Substance: GENTAMICIN
     Indication: KLEBSIELLA INFECTION
     Route: 065
  5. TIGECYCLINE. [Suspect]
     Active Substance: TIGECYCLINE
     Indication: URINARY TRACT INFECTION
     Route: 065
  6. CEFTAZIDIME/AVIBACTAM 2.5 G ASTRA ZENECA [Suspect]
     Active Substance: AVIBACTAM SODIUM\CEFTAZIDIME
     Indication: KLEBSIELLA INFECTION
     Route: 065
  7. CEFTAZIDIME-AVIBACTAM [Suspect]
     Active Substance: AVIBACTAM SODIUM\CEFTAZIDIME
     Indication: KLEBSIELLA INFECTION
     Route: 065
  8. MINOCYCLINE [Suspect]
     Active Substance: MINOCYCLINE\MINOCYCLINE HYDROCHLORIDE
     Indication: KLEBSIELLA INFECTION
     Route: 065
  9. TACROLIMUS. [Concomitant]
     Active Substance: TACROLIMUS
     Indication: PRODUCT USED FOR UNKNOWN INDICATION
     Route: 065
  10. TRIMETHOPRIM/SULFA [Suspect]
     Active Substance: SULFAMETHOXAZOLE\TRIMETHOPRIM
     Indication: PNEUMONIA KLEBSIELLA
     Route: 065
  11. AMIKACIN [Suspect]
     Active Substance: AMIKACIN
     Indication: KLEBSIELLA INFECTION
     Route: 065
  12. CEFOXITIN [Suspect]
     Active Substance: CEFOXITIN SODIUM
     Indication: KLEBSIELLA INFECTION
     Route: 065
  13. CEFTOLOZANE/TAZOBACTAM [Suspect]
     Active Substance: CEFTOLOZANE SULFATE\TAZOBACTAM SODIUM
     Indication: KLEBSIELLA INFECTION
     Route: 065
  14. CEFTRIAXONE. [Suspect]
     Active Substance: CEFTRIAXONE
     Indication: KLEBSIELLA INFECTION
     Route: 065
  15. ERTAPENEM [Suspect]
     Active Substance: ERTAPENEM
     Dosage: UNK
     Route: 065
  16. PIPERCILLIN/TAZOBACTAM [Suspect]
     Active Substance: PIPERACILLIN SODIUM\TAZOBACTAM SODIUM
     Indication: KLEBSIELLA INFECTION
     Route: 065
  17. MYCOPHENOLATE [Concomitant]
     Active Substance: MYCOPHENOLIC ACID
     Indication: PRODUCT USED FOR UNKNOWN INDICATION
     Route: 065
  18. COLISTIN [Suspect]
     Active Substance: COLISTIN
     Indication: KLEBSIELLA INFECTION
     Route: 065
  19. AMPICILLIN/SULBACTAM [Suspect]
     Active Substance: AMPICILLIN SODIUM\SULBACTAM SODIUM
     Indication: KLEBSIELLA INFECTION
     Route: 065
  20. CASPOFUNGIN [Concomitant]
     Active Substance: CASPOFUNGIN
     Indication: SEPSIS
     Route: 065
  21. ERTAPENEM [Suspect]
     Active Substance: ERTAPENEM
     Indication: KLEBSIELLA INFECTION
     Dosage: 1 G, QD
     Route: 065
  22. ERTAPENEM [Suspect]
     Active Substance: ERTAPENEM
     Dosage: UNK
  23. TOBRAMYCIN. [Suspect]
     Active Substance: TOBRAMYCIN
     Indication: KLEBSIELLA INFECTION
     Route: 065
  24. CEFEPIME [Suspect]
     Active Substance: CEFEPIME HYDROCHLORIDE
     Indication: KLEBSIELLA INFECTION
     Route: 065
  25. ERTAPENEM [Suspect]
     Active Substance: ERTAPENEM
     Dosage: UNK
     Route: 065
  26. ERTAPENEM [Suspect]
     Active Substance: ERTAPENEM
     Dosage: UNK
     Route: 065
  27. ERTAPENEM [Suspect]
     Active Substance: ERTAPENEM
     Dosage: UNK
     Route: 065
     Dates: start: 2016
  28. VANCOMYCIN [Concomitant]
     Active Substance: VANCOMYCIN
     Indication: SEPSIS
     Route: 065
  29. FLUCONAZOLE. [Concomitant]
     Active Substance: FLUCONAZOLE
     Indication: CANDIDA INFECTION
     Route: 065

REACTIONS (16)
  - Pathogen resistance [Unknown]
  - Gastrointestinal haemorrhage [Unknown]
  - Lung consolidation [Unknown]
  - Streptococcal infection [Unknown]
  - Sepsis [None]
  - Pneumonia [None]
  - Klebsiella infection [Unknown]
  - Subcutaneous abscess [Unknown]
  - Pseudocyst [None]
  - Pancreatitis acute [Unknown]
  - Abscess [Unknown]
  - Fungaemia [None]
  - Hypoxia [Unknown]
  - Cardiac arrest [Recovered/Resolved]
  - Staphylococcal infection [Unknown]
  - Escherichia infection [Unknown]
